FAERS Safety Report 13678295 (Version 1)
Quarter: 2017Q2

REPORT INFORMATION
  Report Type: Spontaneous
  Country: US (occurrence: US)
  Receive Date: 20170621
  Receipt Date: 20170621
  Transmission Date: 20170830
  Serious: Yes (Other)
  Sender: FDA-Public Use
  Company Number: None

PATIENT
  Age: 51 Year
  Sex: Female

DRUGS (7)
  1. DULOXETINE DR [Concomitant]
     Active Substance: DULOXETINE
  2. OXYCODONE [Concomitant]
     Active Substance: OXYCODONE
  3. NAPROXEN ER [Concomitant]
  4. METOPROLOL ER [Concomitant]
     Active Substance: METOPROLOL SUCCINATE
  5. ONDANSETRON [Concomitant]
     Active Substance: ONDANSETRON
  6. METHYLPHENIDATE ER [Concomitant]
     Active Substance: METHYLPHENIDATE
  7. CAPECITABINE. [Suspect]
     Active Substance: CAPECITABINE
     Indication: GASTROINTESTINAL CARCINOMA
     Route: 048
     Dates: start: 20170504, end: 20170601

REACTIONS (2)
  - Chest discomfort [None]
  - Chest pain [None]

NARRATIVE: CASE EVENT DATE: 20170601
